FAERS Safety Report 20127830 (Version 1)
Quarter: 2021Q4

REPORT INFORMATION
  Report Type: Spontaneous
  Country: CN (occurrence: CN)
  Receive Date: 20211129
  Receipt Date: 20211129
  Transmission Date: 20220303
  Serious: Yes (Other)
  Sender: FDA-Public Use
  Company Number: CN-PFIZER INC-202101596535

PATIENT
  Age: 54 Year
  Sex: Female
  Weight: 53 kg

DRUGS (2)
  1. PACLITAXEL [Suspect]
     Active Substance: PACLITAXEL
     Indication: Ovarian cancer
     Dosage: 210 MG, 1X/DAY
     Route: 041
     Dates: start: 20210111, end: 20210111
  2. LOBAPLATIN [Suspect]
     Active Substance: LOBAPLATIN
     Indication: Ovarian cancer
     Dosage: 50 MG, 1X/DAY
     Route: 041
     Dates: start: 20210112, end: 20210112

REACTIONS (1)
  - White blood cell count decreased [Recovering/Resolving]

NARRATIVE: CASE EVENT DATE: 20210113
